FAERS Safety Report 5078949-9 (Version None)
Quarter: 2006Q3

REPORT INFORMATION
  Report Type: 
  Country: None (occurrence: None)
  Receive Date: 20060809
  Receipt Date: 20060809
  Transmission Date: 20061208
  Serious: Yes (Hospitalization)
  Sender: FDA-Public Use
  Company Number: None

PATIENT
  Sex: Male
  Weight: 65.45 kg

DRUGS (4)
  1. BEVACIZUMAB (RITUMAB VEGF) [Suspect]
     Dosage: 1630 MG
     Dates: end: 20060731
  2. FLUOROURACIL [Suspect]
     Dosage: 21872 MG
     Dates: end: 20060731
  3. LEUCOVORIN CALCIUM [Suspect]
     Dosage: 3550 MG
     Dates: end: 20060731
  4. ELOXATIN [Suspect]
     Dosage: 647 MG
     Dates: end: 20060731

REACTIONS (1)
  - PULMONARY EMBOLISM [None]
